FAERS Safety Report 25894039 (Version 1)
Quarter: 2025Q4

REPORT INFORMATION
  Report Type: Spontaneous
  Country: US (occurrence: US)
  Receive Date: 20251008
  Receipt Date: 20251008
  Transmission Date: 20260118
  Serious: Yes (Other)
  Sender: COOPERSURGICAL
  Company Number: US-COOPERSURGICAL, INC.-2025CPS007197

PATIENT
  Age: 35 Year
  Sex: Female
  Weight: 90.703 kg

DRUGS (1)
  1. PARAGARD T 380A [Suspect]
     Active Substance: COPPER
     Indication: Contraception
     Dosage: UNK
     Route: 015
     Dates: start: 20130403

REACTIONS (17)
  - Infertility female [Unknown]
  - Reproductive complication associated with device [Unknown]
  - Device breakage [Not Recovered/Not Resolved]
  - Complication of device removal [Not Recovered/Not Resolved]
  - Foreign body in reproductive tract [Not Recovered/Not Resolved]
  - Embedded device [Not Recovered/Not Resolved]
  - Pelvic inflammatory disease [Unknown]
  - Urinary tract infection [Recovered/Resolved]
  - Vulvovaginitis trichomonal [Recovered/Resolved]
  - Cervicitis [Unknown]
  - Dysuria [Recovered/Resolved]
  - Device material issue [Not Recovered/Not Resolved]
  - Muscle spasms [Unknown]
  - Heavy menstrual bleeding [Unknown]
  - Bacterial vaginosis [Unknown]
  - Vaginal infection [Unknown]
  - Vulvovaginal candidiasis [Recovered/Resolved]

NARRATIVE: CASE EVENT DATE: 20130925
